FAERS Safety Report 14859211 (Version 1)
Quarter: 2018Q2

REPORT INFORMATION
  Report Type: Spontaneous
  Country: US (occurrence: US)
  Receive Date: 20180508
  Receipt Date: 20180508
  Transmission Date: 20180711
  Serious: Yes (Death)
  Sender: FDA-Public Use
  Company Number: US-AUROBINDO-AUR-APL-2018-023973

PATIENT
  Age: 2 Year
  Sex: Female

DRUGS (1)
  1. RANITIDINE. [Suspect]
     Active Substance: RANITIDINE
     Indication: GASTROOESOPHAGEAL REFLUX DISEASE
     Dosage: UNK
     Route: 065

REACTIONS (6)
  - Eye disorder [Fatal]
  - Gait disturbance [Fatal]
  - Prescribed overdose [Fatal]
  - Drug dispensing error [Fatal]
  - Tremor [Fatal]
  - Lethargy [Fatal]
